FAERS Safety Report 16211694 (Version 1)
Quarter: 2019Q2

REPORT INFORMATION
  Report Type: Spontaneous
  Country: US (occurrence: US)
  Receive Date: 20190417
  Receipt Date: 20190417
  Transmission Date: 20190711
  Serious: Yes (Life-Threatening)
  Sender: FDA-Public Use
  Company Number: None

PATIENT
  Age: 18 Year
  Sex: Male
  Weight: 81 kg

DRUGS (3)
  1. MULTI-VITAMINS [Concomitant]
  2. HIZENTRA [Suspect]
     Active Substance: HUMAN IMMUNOGLOBULIN G
     Indication: IMMUNODEFICIENCY COMMON VARIABLE
  3. PREBIOTIC-PROBIOTIC [Concomitant]

REACTIONS (9)
  - Tachycardia [None]
  - Gastroenteritis [None]
  - Palpitations [None]
  - Hyperhidrosis [None]
  - Weight decreased [None]
  - Anxiety [None]
  - Hypertension [None]
  - Cushing^s syndrome [None]
  - Metanephrine urine increased [None]

NARRATIVE: CASE EVENT DATE: 20190321
